FAERS Safety Report 7969093-9 (Version None)
Quarter: 2011Q4

REPORT INFORMATION
  Report Type: 
  Country: None (occurrence: None)
  Receive Date: 20111209
  Receipt Date: 20111206
  Transmission Date: 20120403
  Serious: Yes (Hospitalization)
  Sender: FDA-Public Use
  Company Number: PHHO2011US16468

PATIENT
  Sex: Female
  Weight: 131.52 kg

DRUGS (5)
  1. BLINDED PLACEBO [Suspect]
     Indication: PRIMARY PROGRESSIVE MULTIPLE SCLEROSIS
     Dosage: CODE NOT BROKEN
     Dates: start: 20110428
  2. LISINOPRIL [Suspect]
     Dosage: 5 MG, UNK
     Dates: start: 20080601
  3. DOXAZOSIN MESYLATE [Concomitant]
     Indication: HYPERTENSION
     Dosage: 4 MG, UNK
     Dates: start: 20070601
  4. BLINDED FTY 720 [Suspect]
     Indication: PRIMARY PROGRESSIVE MULTIPLE SCLEROSIS
     Dosage: CODE NOT BROKEN
     Dates: start: 20110428
  5. BLINDED NO TREATMENT RECEIVED [Suspect]
     Indication: PRIMARY PROGRESSIVE MULTIPLE SCLEROSIS
     Dosage: CODE NOT BROKEN
     Dates: start: 20110428

REACTIONS (3)
  - CHOLECYSTITIS CHRONIC [None]
  - CONCOMITANT DISEASE PROGRESSION [None]
  - CHOLELITHIASIS [None]
